FAERS Safety Report 19003179 (Version 1)
Quarter: 2021Q1

REPORT INFORMATION
  Report Type: Spontaneous
  Country: DE (occurrence: DE)
  Receive Date: 20210312
  Receipt Date: 20210312
  Transmission Date: 20210420
  Serious: Yes (Other)
  Sender: FDA-Public Use
  Company Number: DE-MYLANLABS-2021M1013760

PATIENT
  Sex: Male

DRUGS (9)
  1. ALPRAZOLAM. [Interacting]
     Active Substance: ALPRAZOLAM
     Dosage: UNK
     Dates: end: 2019
  2. ESCITALOPRAM [Interacting]
     Active Substance: ESCITALOPRAM OXALATE
     Indication: DRUG WITHDRAWAL SYNDROME
     Dosage: UNK
  3. PREGABALIN BETA [Interacting]
     Active Substance: PREGABALIN
     Indication: DRUG WITHDRAWAL SYNDROME
     Dosage: 75 MILLIGRAM, QD
     Route: 048
  4. ALPRAZOLAM. [Interacting]
     Active Substance: ALPRAZOLAM
     Indication: PRODUCT USED FOR UNKNOWN INDICATION
     Dosage: UNK
     Dates: end: 2020
  5. VENLAFAXINE [Interacting]
     Active Substance: VENLAFAXINE HYDROCHLORIDE
     Dosage: UNK
  6. SERTRALIN BETA [Interacting]
     Active Substance: SERTRALINE HYDROCHLORIDE
     Indication: ANXIOLYTIC THERAPY
     Dosage: 100 MILLIGRAM, QD
     Route: 048
     Dates: end: 2020
  7. SERTRALIN BETA [Interacting]
     Active Substance: SERTRALINE HYDROCHLORIDE
     Dosage: UNK UNK, QD
     Route: 048
     Dates: end: 2020
  8. BUSPIRONE [Interacting]
     Active Substance: BUSPIRONE HYDROCHLORIDE
     Indication: PRODUCT USED FOR UNKNOWN INDICATION
     Dosage: UNK
  9. VENLAFAXINE [Suspect]
     Active Substance: VENLAFAXINE HYDROCHLORIDE
     Indication: ANXIOLYTIC THERAPY
     Dosage: UNK

REACTIONS (10)
  - Head discomfort [Unknown]
  - Restlessness [Recovered/Resolved]
  - Anxiety [Unknown]
  - Gastrointestinal disorder [Recovered/Resolved]
  - Mental impairment [Not Recovered/Not Resolved]
  - Tension [Unknown]
  - Sedation [Unknown]
  - Potentiating drug interaction [Unknown]
  - Sensory disturbance [Not Recovered/Not Resolved]
  - Nervousness [Unknown]
